FAERS Safety Report 4628299-7 (Version None)
Quarter: 2005Q2

REPORT INFORMATION
  Report Type: 
  Country: None (occurrence: None)
  Receive Date: 20050401
  Receipt Date: 20050318
  Transmission Date: 20051028
  Serious: Yes (Death)
  Sender: FDA-Public Use
  Company Number: 0500008EN0020P

PATIENT
  Age: 9 Year
  Weight: 37 kg

DRUGS (5)
  1. ONCASPAR [Suspect]
     Indication: ACUTE LYMPHOCYTIC LEUKAEMIA
     Dosage: 2500 IU/M2 (1 DOSE)
  2. VINCRISTINE [Suspect]
     Indication: ACUTE LYMPHOCYTIC LEUKAEMIA
     Dosage: 1.5MG/M2QWEEK (4 DOSES)
  3. CYTARABINE [Suspect]
     Indication: ACUTE LYMPHOCYTIC LEUKAEMIA
     Dosage: 70 MG IT; (1 DOSE)
     Route: 037
  4. DEXAMETHASONE [Suspect]
     Indication: ACUTE LYMPHOCYTIC LEUKAEMIA
     Dosage: 6 MG/M2; QD PO (28 DOSES)
     Route: 048
  5. METHOTREXATE [Suspect]
     Indication: ACUTE LYMPHOCYTIC LEUKAEMIA
     Dosage: 12 MG IT; (2 DOSES)
     Route: 037

REACTIONS (9)
  - ABDOMINAL PAIN [None]
  - ACIDOSIS [None]
  - ACUTE RESPIRATORY DISTRESS SYNDROME [None]
  - GENERAL PHYSICAL HEALTH DETERIORATION [None]
  - HYPOTENSION [None]
  - OLIGURIA [None]
  - PANCYTOPENIA [None]
  - PETECHIAE [None]
  - SEPTIC SHOCK [None]
